FAERS Safety Report 14535882 (Version 1)
Quarter: 2018Q1

REPORT INFORMATION
  Report Type: Spontaneous
  Country: CA (occurrence: CA)
  Receive Date: 20180214
  Receipt Date: 20180214
  Transmission Date: 20180509
  Serious: Yes (Life-Threatening, Hospitalization, Disabling, Other)
  Sender: FDA-Public Use
  Company Number: None

PATIENT
  Sex: Male
  Weight: 83.25 kg

DRUGS (1)
  1. TRINTELLIX [Suspect]
     Active Substance: VORTIOXETINE HYDROBROMIDE
     Indication: DEPRESSION
     Dosage: ?          QUANTITY:1.5 TABLET(S);?
     Route: 048
     Dates: start: 20170927, end: 20171222

REACTIONS (26)
  - Hallucination [None]
  - Anger [None]
  - Bipolar disorder [None]
  - Schizophrenia [None]
  - Hyperhidrosis [None]
  - Withdrawal syndrome [None]
  - Mania [None]
  - Myalgia [None]
  - Suicidal ideation [None]
  - Nausea [None]
  - Pyrexia [None]
  - Anxiety [None]
  - Dizziness [None]
  - Insomnia [None]
  - Mood swings [None]
  - Tremor [None]
  - Headache [None]
  - Paranoia [None]
  - Tachyphrenia [None]
  - Speech disorder [None]
  - Alcohol abuse [None]
  - Obsessive-compulsive disorder [None]
  - Chills [None]
  - Mental impairment [None]
  - Amnesia [None]
  - Paraesthesia [None]

NARRATIVE: CASE EVENT DATE: 20171101
